FAERS Safety Report 8345970-4 (Version None)
Quarter: 2012Q2

REPORT INFORMATION
  Report Type: 
  Country: None (occurrence: None)
  Receive Date: 20120507
  Receipt Date: 20120418
  Transmission Date: 20120825
  Serious: Yes (Other)
  Sender: FDA-Public Use
  Company Number: FR-2012-1808

PATIENT
  Age: 59 Year
  Sex: Male

DRUGS (3)
  1. MITOMYCIN [Concomitant]
  2. CISPLATIN [Suspect]
     Indication: LUNG SQUAMOUS CELL CARCINOMA RECURRENT
     Dosage: 100 MG/M2
  3. NAVELBINE [Suspect]
     Indication: LUNG SQUAMOUS CELL CARCINOMA RECURRENT
     Dosage: 30 MG/HR IV
     Route: 042
     Dates: start: 19970601

REACTIONS (6)
  - ISCHAEMIA [None]
  - EJECTION FRACTION DECREASED [None]
  - PULMONARY OEDEMA [None]
  - CIRCULATORY COLLAPSE [None]
  - APLASIA [None]
  - TACHYCARDIA [None]
